FAERS Safety Report 6005019-5 (Version None)
Quarter: 2008Q4

REPORT INFORMATION
  Report Type: 
  Country: None (occurrence: None)
  Receive Date: 20081216
  Receipt Date: 20080102
  Transmission Date: 20090506
  Serious: No
  Sender: FDA-Public Use
  Company Number: US-BAUSCH-2008BL000002

PATIENT
  Age: 2 Year
  Sex: Female

DRUGS (2)
  1. NEOMYCIN AND POLYMXIN B SULFATES AND HYDROCORTISONE [Suspect]
     Route: 047
     Dates: start: 20071217
  2. AMOXICILLIN [Concomitant]
     Route: 048

REACTIONS (2)
  - LACRIMATION INCREASED [None]
  - MEDICATION ERROR [None]
